FAERS Safety Report 13187927 (Version 14)
Quarter: 2019Q1

REPORT INFORMATION
  Report Type: Spontaneous
  Country: US (occurrence: US)
  Receive Date: 20170206
  Receipt Date: 20190211
  Transmission Date: 20190417
  Serious: Yes (Congenital Anomaly, Other)
  Sender: FDA-Public Use
  Company Number: PHEH2017US003338

PATIENT
  Sex: Male

DRUGS (3)
  1. ZOFRAN [Suspect]
     Active Substance: ONDANSETRON HYDROCHLORIDE
     Indication: FOETAL EXPOSURE DURING PREGNANCY
     Dosage: MOTHER DOSE: 8 MG, QD
     Route: 064
  2. ONDANSETRON. [Suspect]
     Active Substance: ONDANSETRON
     Indication: FOETAL EXPOSURE DURING PREGNANCY
     Dosage: MOTHER^S DOSE: 04 MG, PRN
     Route: 064
  3. ZOFRAN [Suspect]
     Active Substance: ONDANSETRON HYDROCHLORIDE
     Indication: FOETAL EXPOSURE DURING PREGNANCY
     Dosage: UNK
     Route: 064

REACTIONS (25)
  - Atrial septal defect [Unknown]
  - Tricuspid valve incompetence [Unknown]
  - Pyrexia [Unknown]
  - Constipation [Unknown]
  - Upper respiratory tract infection [Unknown]
  - Cough [Unknown]
  - Pulmonary hypertension [Unknown]
  - Right ventricular dysfunction [Unknown]
  - Pharyngitis [Unknown]
  - Rhinitis allergic [Unknown]
  - Neonatal respiratory distress syndrome [Unknown]
  - Foetal exposure during pregnancy [Unknown]
  - Otitis media acute [Unknown]
  - Snoring [Unknown]
  - Eustachian tube dysfunction [Unknown]
  - Meconium aspiration syndrome [Unknown]
  - Sinusitis [Unknown]
  - Conjunctivitis [Unknown]
  - Acute sinusitis [Unknown]
  - Pulmonary valve stenosis congenital [Unknown]
  - Left-to-right cardiac shunt [Unknown]
  - Right-to-left cardiac shunt [Unknown]
  - Dental caries [Unknown]
  - Heart disease congenital [Unknown]
  - Neonatal tachycardia [Unknown]
